FAERS Safety Report 6712670-3 (Version None)
Quarter: 2010Q2

REPORT INFORMATION
  Report Type: 
  Country: None (occurrence: None)
  Receive Date: 20100505
  Receipt Date: 20100505
  Transmission Date: 20101027
  Serious: No
  Sender: FDA-Public Use
  Company Number: None

PATIENT
  Age: 66 Year
  Sex: Female
  Weight: 83.4619 kg

DRUGS (1)
  1. DIOVAN [Suspect]
     Indication: BLOOD PRESSURE
     Dosage: 160 MG 1/2 - DAY MOUTH
     Route: 048

REACTIONS (4)
  - BLINDNESS TRANSIENT [None]
  - CHROMATOPSIA [None]
  - DIPLOPIA [None]
  - VISUAL IMPAIRMENT [None]
